FAERS Safety Report 5917195-0 (Version None)
Quarter: 2008Q4

REPORT INFORMATION
  Report Type: 
  Country: None (occurrence: None)
  Receive Date: 20081014
  Receipt Date: 20081013
  Transmission Date: 20090506
  Serious: Yes (Disabling, Other)
  Sender: FDA-Public Use
  Company Number: DE-BRISTOL-MYERS SQUIBB COMPANY-14223317

PATIENT
  Age: 76 Year
  Sex: Male
  Weight: 71 kg

DRUGS (7)
  1. HYDROXYUREA [Suspect]
     Indication: THROMBOCYTHAEMIA
     Dosage: 1 DF - 1 CAPSULE
     Route: 048
     Dates: start: 20040101
  2. EUGLUCON [Suspect]
     Indication: TYPE 2 DIABETES MELLITUS
     Dosage: 1 DOSAGE FORM = 2-3(UNITS NOT SPECIFIED)
     Dates: start: 19950101
  3. CARMEN [Suspect]
     Dosage: 1 DOSAGE FORM = 1 (UNITS NOT SPECIFIED)
     Dates: start: 20050101
  4. BLOPRESS [Suspect]
     Dosage: 1 DOSAGE FORM = 1 (UNITS NOT SPECIFIED)
     Dates: start: 20050101
  5. ASPIRIN [Concomitant]
     Dosage: 1 DF = 50UNIT NOT SPECIFIED.
  6. OMEPRAZOLE [Concomitant]
  7. CREON [Concomitant]

REACTIONS (2)
  - PAIN [None]
  - PANCREATITIS [None]
